FAERS Safety Report 15387672 (Version 1)
Quarter: 2018Q3

REPORT INFORMATION
  Report Type: Spontaneous
  Country: US (occurrence: US)
  Receive Date: 20180914
  Receipt Date: 20180914
  Transmission Date: 20181010
  Serious: Yes (Hospitalization)
  Sender: FDA-Public Use
  Company Number: US-ELI_LILLY_AND_COMPANY-US201809005934

PATIENT
  Age: 73 Year
  Sex: Female

DRUGS (1)
  1. CIALIS [Suspect]
     Active Substance: TADALAFIL
     Indication: PRODUCT USED FOR UNKNOWN INDICATION
     Dosage: 2.5 MG, UNKNOWN
     Route: 065

REACTIONS (4)
  - Intentional product misuse [Unknown]
  - Cerebrovascular accident [Recovering/Resolving]
  - Coma [Recovering/Resolving]
  - Wrong technique in product usage process [Unknown]
